FAERS Safety Report 11611795 (Version 2)
Quarter: 2015Q4

REPORT INFORMATION
  Report Type: Report from Study
  Country: US (occurrence: US)
  Receive Date: 20151008
  Receipt Date: 20151120
  Transmission Date: 20160304
  Serious: Yes (Other)
  Sender: FDA-Public Use
  Company Number: US-AMGEN-USASL2015103410

PATIENT
  Age: 58 Year
  Sex: Male

DRUGS (1)
  1. ENBREL [Suspect]
     Active Substance: ETANERCEPT
     Indication: PSORIATIC ARTHROPATHY
     Dosage: , QWK (ALWAYS TAKE ON FRIDAY MORNING)
     Route: 065
     Dates: start: 2004

REACTIONS (4)
  - Device issue [Unknown]
  - Discomfort [Unknown]
  - Drug dose omission [Unknown]
  - Knee arthroplasty [Unknown]

NARRATIVE: CASE EVENT DATE: 200912
